FAERS Safety Report 10435990 (Version 1)
Quarter: 2014Q3

REPORT INFORMATION
  Report Type: Spontaneous
  Country: US (occurrence: None)
  Receive Date: 20140904
  Receipt Date: 20140904
  Transmission Date: 20150326
  Serious: Yes (Other)
  Sender: FDA-Public Use
  Company Number: COL_17565_2014

PATIENT
  Age: 68 Year
  Sex: Female

DRUGS (1)
  1. COLGATE TOTAL ADVANCED CLEAN [Suspect]
     Active Substance: SODIUM FLUORIDE\TRICLOSAN
     Indication: PRODUCT USED FOR UNKNOWN INDICATION
     Dosage: COVERS 1/2 THE HEAD OF HER TOOTHBRUSH/QD/ORAL
     Route: 048
     Dates: end: 201408

REACTIONS (2)
  - Ovarian cancer [None]
  - Malignant peritoneal neoplasm [None]

NARRATIVE: CASE EVENT DATE: 201302
